FAERS Safety Report 10010551 (Version 3)
Quarter: 2014Q2

REPORT INFORMATION
  Report Type: Spontaneous
  Country: DE (occurrence: DE)
  Receive Date: 20140314
  Receipt Date: 20140430
  Transmission Date: 20141212
  Serious: Yes (Other)
  Sender: FDA-Public Use
  Company Number: DE-PFIZER INC-2014067839

PATIENT
  Age: 59 Year
  Sex: Female
  Weight: 70 kg

DRUGS (2)
  1. XALATAN [Suspect]
     Dosage: UNK
     Route: 047
     Dates: start: 201309
  2. XALATAN [Suspect]
     Dosage: UNK
     Route: 047
     Dates: start: 20140208

REACTIONS (3)
  - Ophthalmic herpes zoster [Unknown]
  - Conjunctival hyperaemia [Unknown]
  - Herpes zoster [Unknown]
